FAERS Safety Report 11115340 (Version 1)
Quarter: 2015Q2

REPORT INFORMATION
  Report Type: Spontaneous
  Country: US (occurrence: None)
  Receive Date: 20150513
  Receipt Date: 20150513
  Transmission Date: 20150821
  Serious: Yes (Other)
  Sender: FDA-Public Use
  Company Number: 2015RIS00063

PATIENT
  Age: 31 Year
  Sex: Female

DRUGS (3)
  1. NIFEDIPINE (NIFEDIPINE) [Concomitant]
  2. CLONIDINE. [Concomitant]
     Active Substance: CLONIDINE
  3. LOSARTAN (LOSARTAN) [Suspect]
     Active Substance: LOSARTAN

REACTIONS (1)
  - Intestinal angioedema [None]
